FAERS Safety Report 7278642-8 (Version None)
Quarter: 2011Q1

REPORT INFORMATION
  Report Type: 
  Country: None (occurrence: None)
  Receive Date: 20110207
  Receipt Date: 20110201
  Transmission Date: 20110831
  Serious: No
  Sender: FDA-Public Use
  Company Number: US-PFIZER INC-2011023517

PATIENT
  Sex: Male
  Weight: 85.714 kg

DRUGS (2)
  1. ADVIL [Suspect]
     Indication: MUSCULOSKELETAL PAIN
     Dosage: 400 MG, SINGLE
     Route: 048
     Dates: start: 20110101
  2. LIPITOR [Concomitant]
     Indication: BLOOD CHOLESTEROL ABNORMAL
     Dosage: 40 MG, 3X/WEEK
     Route: 048

REACTIONS (1)
  - RASH [None]
